FAERS Safety Report 6935927-X (Version None)
Quarter: 2010Q3

REPORT INFORMATION
  Report Type: 
  Country: None (occurrence: None)
  Receive Date: 20100823
  Receipt Date: 20100722
  Transmission Date: 20110219
  Serious: No
  Sender: FDA-Public Use
  Company Number: US-BAYER-201018736BCC

PATIENT
  Age: 56 Year
  Sex: Male
  Weight: 95 kg

DRUGS (1)
  1. ALEVE [Suspect]
     Indication: ARTHRITIS
     Dosage: CONSUMER TOOK 2 OR 3 TABLETS AT A TIME
     Route: 048
     Dates: start: 20080101

REACTIONS (1)
  - GASTROOESOPHAGEAL REFLUX DISEASE [None]
